FAERS Safety Report 12522917 (Version 2)
Quarter: 2016Q3

REPORT INFORMATION
  Report Type: Spontaneous
  Country: US (occurrence: US)
  Receive Date: 20160701
  Receipt Date: 20160713
  Transmission Date: 20161109
  Serious: Yes (Life-Threatening, Hospitalization, Other)
  Sender: FDA-Public Use
  Company Number: US-SAOL THERAPEUTICS-2016SAO00006

PATIENT
  Age: 10 Year
  Sex: Male

DRUGS (3)
  1. BACLOFEN. [Suspect]
     Active Substance: BACLOFEN
     Indication: CEREBRAL PALSY
     Dosage: 345.4 ?G, \DAY
     Route: 037
     Dates: end: 20160609
  2. BACLOFEN. [Suspect]
     Active Substance: BACLOFEN
     Indication: MUSCLE SPASTICITY
     Dosage: 200.3 ?G, \DAY
     Route: 037
     Dates: start: 20160609
  3. PHENOBARBITAL. [Suspect]
     Active Substance: PHENOBARBITAL

REACTIONS (6)
  - Lethargy [Unknown]
  - Drug withdrawal syndrome [Unknown]
  - Muscle spasticity [Unknown]
  - Device malfunction [Unknown]
  - Pneumothorax [Unknown]
  - Irritability [Unknown]

NARRATIVE: CASE EVENT DATE: 201605
